FAERS Safety Report 8014808-7 (Version None)
Quarter: 2011Q4

REPORT INFORMATION
  Report Type: 
  Country: None (occurrence: None)
  Receive Date: 20111229
  Receipt Date: 20111220
  Transmission Date: 20120403
  Serious: Yes (Hospitalization, Other)
  Sender: FDA-Public Use
  Company Number: BR-ABBOTT-11P-020-0802845-00

PATIENT
  Sex: Male
  Weight: 63 kg

DRUGS (13)
  1. OMEPRAZOLE [Concomitant]
     Indication: GASTRIC DISORDER
     Dosage: DAILY DOSE:  UNKNOWN
     Route: 065
  2. CALCIUM PHOSPHATE [Concomitant]
     Indication: OSTEOPOROSIS
     Dosage: DAILY DOSE:  UNKNOWN
     Route: 065
  3. ALL OTHER THERAPEUTIC PRODUCTS [Concomitant]
     Indication: PRODUCT USED FOR UNKNOWN INDICATION
     Dosage: DAILY DOSE:  UNKNOWN
     Route: 065
  4. ALL OTHER THERAPEUTIC PRODUCTS [Concomitant]
     Indication: DEJA VU
     Dosage: DAILY DOSE:  UNKNOWN
     Route: 065
  5. CALCORT [Concomitant]
     Indication: POLYMYALGIA RHEUMATICA
     Dosage: DAILY DOSE:  UNKNOWN
     Route: 065
  6. COLECALCIFEROL [Concomitant]
     Indication: OSTEOPOROSIS
     Dosage: DAILY DOSE: 8 DROP(S)
     Route: 065
  7. ALL OTHER THERAPEUTIC PRODUCTS [Concomitant]
     Indication: OSTEOPOROSIS
     Dosage: DAILY DOSE:  UNKNOWN
     Route: 065
  8. FOLIC ACID [Concomitant]
     Indication: POLYMYALGIA RHEUMATICA
     Dosage: DAILY DOSE:  UNKNOWN
     Route: 065
  9. CREON [Suspect]
     Indication: PANCREATITIS CHRONIC
     Dosage: DAILY DOSE: 5 DOSAGE FORM, UNIT DOSE: 25.000
     Route: 048
  10. METFORMIN HCL [Concomitant]
     Indication: DIABETES MELLITUS
     Dosage: DAILY DOSE:  UNKNOWN
     Route: 065
  11. DIOVAN [Concomitant]
     Indication: HYPERTENSION
     Dosage: DAILY DOSE:  UNKNOWN
     Route: 065
  12. PLAVIX [Concomitant]
     Indication: DIABETES MELLITUS
     Dosage: DAILY DOSE:  UNKNOWN
     Route: 065
  13. REPAGLINIDE [Concomitant]
     Indication: DIABETES MELLITUS
     Dosage: DAILY DOSE:  UNKNOWN
     Route: 065

REACTIONS (13)
  - DEJA VU [None]
  - DRUG INEFFECTIVE [None]
  - HYPERTENSION [None]
  - BLOOD PRESSURE INCREASED [None]
  - NAUSEA [None]
  - VOMITING [None]
  - DIABETES MELLITUS [None]
  - POLYMYALGIA RHEUMATICA [None]
  - ABDOMINAL PAIN [None]
  - PANCREATITIS [None]
  - BLOOD PRESSURE DECREASED [None]
  - EMPHYSEMA [None]
  - CARCINOID TUMOUR [None]
